FAERS Safety Report 8511404-X (Version None)
Quarter: 2012Q3

REPORT INFORMATION
  Report Type: 
  Country: None (occurrence: None)
  Receive Date: 20120716
  Receipt Date: 20120710
  Transmission Date: 20120928
  Serious: No
  Sender: FDA-Public Use
  Company Number: US-009507513-1207USA002685

PATIENT

DRUGS (4)
  1. RIBASPHERE [Concomitant]
     Dosage: UNK UNK, UNKNOWN
     Dates: start: 20111201
  2. PROCRIT [Concomitant]
     Dosage: UNK, UNKNOWN
  3. VICTRELIS [Suspect]
     Indication: HEPATITIS C
     Dosage: UNK UNK, UNKNOWN
     Dates: start: 20120101
  4. PEG-INTRON [Suspect]
     Dosage: 150 MICROGRAM, UNKNOWN
     Dates: start: 20111201

REACTIONS (2)
  - RASH [None]
  - PSORIASIS [None]
